FAERS Safety Report 19849732 (Version 1)
Quarter: 2021Q3

REPORT INFORMATION
  Report Type: Spontaneous
  Country: CN (occurrence: CN)
  Receive Date: 20210917
  Receipt Date: 20210917
  Transmission Date: 20211014
  Serious: Yes (Life-Threatening, Other)
  Sender: FDA-Public Use
  Company Number: CN-ABBVIE-21K-035-4084591-00

PATIENT
  Age: 70 Year
  Sex: Male
  Weight: 52 kg

DRUGS (2)
  1. VENETOCLAX. [Suspect]
     Active Substance: VENETOCLAX
     Indication: NON-HODGKIN^S LYMPHOMA
     Dosage: DAY 1 TO DAY 21
     Route: 048
     Dates: start: 20210802, end: 20210821
  2. DECITABINE. [Concomitant]
     Active Substance: DECITABINE
     Indication: NON-HODGKIN^S LYMPHOMA
     Dosage: DAY1 TO DAY 5
     Dates: start: 20210802

REACTIONS (3)
  - Neutrophil count decreased [Recovering/Resolving]
  - Off label use [Unknown]
  - Myelosuppression [Unknown]

NARRATIVE: CASE EVENT DATE: 20210802
